FAERS Safety Report 18953044 (Version 1)
Quarter: 2021Q1

REPORT INFORMATION
  Report Type: Spontaneous
  Country: US (occurrence: US)
  Receive Date: 20210227
  Receipt Date: 20210227
  Transmission Date: 20210420
  Serious: Yes (Other)
  Sender: FDA-Public Use
  Company Number: None

PATIENT
  Age: 27 Year
  Sex: Female
  Weight: 76.5 kg

DRUGS (2)
  1. WOMEN^S MULTIVITAMIN [Concomitant]
  2. CIPROFLOXACIN HCL [Suspect]
     Active Substance: CIPROFLOXACIN HYDROCHLORIDE
     Indication: BACTERIAL INFECTION
     Dosage: ?          QUANTITY:1 TABLET(S);?
     Route: 048
     Dates: start: 20210223, end: 20210226

REACTIONS (6)
  - Anxiety [None]
  - Paranoia [None]
  - Dyspepsia [None]
  - Nausea [None]
  - Hallucination [None]
  - Insomnia [None]

NARRATIVE: CASE EVENT DATE: 20210226
